FAERS Safety Report 24069399 (Version 1)
Quarter: 2024Q3

REPORT INFORMATION
  Report Type: Report from Study
  Country: US (occurrence: US)
  Receive Date: 20240710
  Receipt Date: 20240710
  Transmission Date: 20241017
  Serious: No
  Sender: ROCHE
  Company Number: US-ROCHE-2878880

PATIENT
  Age: 62 Year
  Sex: Female

DRUGS (4)
  1. PHESGO [Suspect]
     Active Substance: HYALURONIDASE-ZZXF\PERTUZUMAB\TRASTUZUMAB
     Indication: Hepatocellular carcinoma
     Dosage: INJECT 600MG SUBCUTANEOUSLY EVERY 21 DAY(S) FOR 12 CYCLES
     Route: 058
  2. PHESGO [Suspect]
     Active Substance: HYALURONIDASE-ZZXF\PERTUZUMAB\TRASTUZUMAB
     Route: 058
  3. PERJETA [Suspect]
     Active Substance: PERTUZUMAB
     Indication: Hepatocellular carcinoma
     Dosage: VIAL
     Route: 042
  4. HERCEPTIN [Suspect]
     Active Substance: TRASTUZUMAB
     Indication: Hepatocellular carcinoma
     Dosage: INFUSE 518MG INTRAVENOUSLY EVERY 21 DAY(S)
     Route: 041

REACTIONS (3)
  - Off label use [Unknown]
  - Drug hypersensitivity [Unknown]
  - Off label use [Unknown]
